FAERS Safety Report 7677389-3 (Version None)
Quarter: 2011Q3

REPORT INFORMATION
  Report Type: 
  Country: None (occurrence: None)
  Receive Date: 20110810
  Receipt Date: 20110810
  Transmission Date: 20111222
  Serious: Yes (Hospitalization)
  Sender: FDA-Public Use
  Company Number: None

PATIENT
  Age: 59 Year
  Sex: Male
  Weight: 107.1 kg

DRUGS (19)
  1. MB1 MOUTHWASH [Concomitant]
  2. OXYCODONE HCL [Concomitant]
  3. SIMAVASTATIN [Concomitant]
  4. METHADONE HCL [Concomitant]
  5. REGLAN [Concomitant]
  6. ABRAXANE [Suspect]
     Indication: HEAD AND NECK CANCER
     Dosage: 50 MG/M2 WEEKLY
     Dates: start: 20110620, end: 20110801
  7. CARBOPLATIN [Suspect]
     Indication: HEAD AND NECK CANCER
     Dosage: 1.5 AUD IV WEEKLY
     Route: 042
     Dates: start: 20110620, end: 20110801
  8. COLACE [Concomitant]
  9. LORAZEPAM [Concomitant]
  10. SEROQUEL [Concomitant]
  11. SERZONE [Concomitant]
  12. ALKALOL [Concomitant]
  13. ATENOLOL [Concomitant]
  14. DIFLUCAN [Concomitant]
  15. DILAUDID [Concomitant]
  16. SENNA [Concomitant]
  17. MIRTAZAPINE [Concomitant]
  18. ONDASETRON HCL [Concomitant]
  19. RITALIN [Concomitant]

REACTIONS (7)
  - FAILURE TO THRIVE [None]
  - WEIGHT DECREASED [None]
  - ORAL PAIN [None]
  - CONFUSIONAL STATE [None]
  - PAIN [None]
  - DEHYDRATION [None]
  - TREATMENT NONCOMPLIANCE [None]
